FAERS Safety Report 7286359-9 (Version None)
Quarter: 2011Q1

REPORT INFORMATION
  Report Type: 
  Country: None (occurrence: None)
  Receive Date: 20110126
  Receipt Date: 20101029
  Transmission Date: 20110831
  Serious: Yes (Life-Threatening, Hospitalization, Other)
  Sender: FDA-Public Use
  Company Number: 2010AC000137

PATIENT
  Age: 54 Year
  Sex: Male
  Weight: 91.173 kg

DRUGS (12)
  1. POTASSIUM CHLORIDE [Concomitant]
  2. ALTACE [Concomitant]
  3. AMBIEN [Concomitant]
  4. DIGOXIN [Suspect]
     Indication: CARDIAC FAILURE CONGESTIVE
     Dosage: 0.125 MG;QD;PO
     Route: 048
     Dates: start: 20060101
  5. COREG [Concomitant]
  6. ASA [Concomitant]
  7. METHADONE [Concomitant]
  8. ENALAPRIL [Concomitant]
  9. DIGOXIN [Suspect]
     Dosage: PO
     Route: 048
     Dates: start: 20050101
  10. LASIX [Concomitant]
  11. PAXIL [Concomitant]
  12. DOBUTAMINE INFUSIONS [Concomitant]

REACTIONS (24)
  - MITRAL VALVE INCOMPETENCE [None]
  - TRICUSPID VALVE INCOMPETENCE [None]
  - ELECTROCARDIOGRAM T WAVE INVERSION [None]
  - ARRHYTHMIA [None]
  - WEIGHT INCREASED [None]
  - CARDIAC FAILURE [None]
  - VENTRICULAR EXTRASYSTOLES [None]
  - RIGHT ATRIAL DILATATION [None]
  - DIZZINESS [None]
  - LEFT VENTRICULAR DYSFUNCTION [None]
  - DYSPNOEA [None]
  - SUPRAVENTRICULAR EXTRASYSTOLES [None]
  - HYPERHIDROSIS [None]
  - FATIGUE [None]
  - CHEST PAIN [None]
  - SINUS BRADYCARDIA [None]
  - TREATMENT NONCOMPLIANCE [None]
  - MULTIPLE INJURIES [None]
  - EJECTION FRACTION DECREASED [None]
  - PANIC ATTACK [None]
  - CONGESTIVE CARDIOMYOPATHY [None]
  - VENTRICULAR TACHYCARDIA [None]
  - ARRHYTHMIA SUPRAVENTRICULAR [None]
  - UNEVALUABLE EVENT [None]
